FAERS Safety Report 14206188 (Version 2)
Quarter: 2017Q4

REPORT INFORMATION
  Report Type: Spontaneous
  Country: US (occurrence: US)
  Receive Date: 20171120
  Receipt Date: 20171127
  Transmission Date: 20180321
  Serious: Yes (Life-Threatening, Hospitalization, Other)
  Sender: FDA-Public Use
  Company Number: US-009507513-1711USA006087

PATIENT
  Age: 78 Year
  Sex: Female

DRUGS (1)
  1. KEYTRUDA [Suspect]
     Active Substance: PEMBROLIZUMAB
     Indication: OVARIAN CANCER METASTATIC
     Dosage: ONE INFUSION ONCE EVERY THREE WEEKS
     Route: 042
     Dates: start: 20171011, end: 201710

REACTIONS (18)
  - Myelodysplastic syndrome [Unknown]
  - Neuropathy peripheral [Unknown]
  - Pyrexia [Unknown]
  - Fatigue [Unknown]
  - Platelet count decreased [Unknown]
  - Febrile neutropenia [Unknown]
  - Product use in unapproved indication [Unknown]
  - Bone marrow failure [Recovering/Resolving]
  - Neutropenia [Unknown]
  - Alopecia [Unknown]
  - Oropharyngeal pain [Unknown]
  - Asthenia [Unknown]
  - Appetite disorder [Unknown]
  - Back pain [Unknown]
  - Microcytic anaemia [Unknown]
  - Myalgia [Unknown]
  - Malignant neoplasm progression [Not Recovered/Not Resolved]
  - Muscular weakness [Unknown]

NARRATIVE: CASE EVENT DATE: 201710
